FAERS Safety Report 9252064 (Version 1)
Quarter: 2013Q1

REPORT INFORMATION
  Report Type: Spontaneous
  Country: US (occurrence: None)
  Receive Date: 20130305
  Receipt Date: 20130305
  Transmission Date: 20140127
  Serious: Yes (Other)
  Sender: FDA-Public Use
  Company Number: 163-21880-12081933 (0)

PATIENT
  Age: 74 Year
  Sex: Female
  Weight: 53.52 kg

DRUGS (9)
  1. REVLIMID [Suspect]
     Indication: PLASMA CELL MYELOMA
     Route: 048
     Dates: start: 201103, end: 2011
  2. MORPHINE SULFATE (MORPHINE SULFATE) [Concomitant]
  3. LOW DOSE ASPIRIN (ACETYLSALICYLIC ACID) [Concomitant]
  4. NEXIUM [Concomitant]
  5. RESTASIS (CICLOSPORIN) [Concomitant]
  6. VESICARE (SOLIFENACIN SUCCINATE) [Concomitant]
  7. ACYCLOVIR (ACICLOVIR) [Concomitant]
  8. NEURONTIN (GABAPENTIN) [Concomitant]
  9. ZOMETA (ZOLEDRONIC ACID) [Concomitant]

REACTIONS (3)
  - Urticaria [None]
  - White blood cell count decreased [None]
  - Neutrophil count decreased [None]
